FAERS Safety Report 14765351 (Version 2)
Quarter: 2018Q3

REPORT INFORMATION
  Report Type: Report from Study
  Country: US (occurrence: US)
  Receive Date: 20180416
  Receipt Date: 20180710
  Transmission Date: 20181010
  Serious: Yes (Death, Other)
  Sender: FDA-Public Use
  Company Number: US-ARIAD-2017US008474

PATIENT
  Sex: Male

DRUGS (2)
  1. BLINCYTO [Concomitant]
     Active Substance: BLINATUMOMAB
     Indication: CHRONIC MYELOID LEUKAEMIA
     Dosage: UNK
     Route: 065
  2. PONATINIB [Suspect]
     Active Substance: PONATINIB
     Indication: CHRONIC MYELOID LEUKAEMIA
     Dosage: 45 MG, QD
     Route: 048
     Dates: start: 201703

REACTIONS (9)
  - Lymphoma [Not Recovered/Not Resolved]
  - Ocular hyperaemia [Unknown]
  - Chronic myeloid leukaemia recurrent [Unknown]
  - Lymphoedema [Unknown]
  - Rash [Unknown]
  - Fatigue [Unknown]
  - Death [Fatal]
  - Rhinorrhoea [Unknown]
  - Cellulitis [Unknown]
